FAERS Safety Report 4685122-2 (Version None)
Quarter: 2005Q2

REPORT INFORMATION
  Report Type: 
  Country: None (occurrence: None)
  Receive Date: 20050531
  Receipt Date: 20050215
  Transmission Date: 20051028
  Serious: No
  Sender: FDA-Public Use
  Company Number: FABR-10920

PATIENT
  Age: 57 Year
  Sex: Female
  Weight: 99.8 kg

DRUGS (15)
  1. FABRAZYME [Suspect]
     Indication: FABRY'S DISEASE
     Dosage: 100 MG Q2WKS IV
     Route: 042
     Dates: start: 20031112
  2. NEURONTIN [Concomitant]
  3. PERCOCET [Concomitant]
  4. VERELAN [Concomitant]
  5. OMEPRAZOLE [Concomitant]
  6. TRICOR [Concomitant]
  7. LIPITOR [Concomitant]
  8. ISOSORBIDE [Concomitant]
  9. LEXAPRO [Concomitant]
  10. CYMBALTA [Concomitant]
  11. FUROSEMIDE [Concomitant]
  12. BENZONATATE [Concomitant]
  13. ZYRTEC [Concomitant]
  14. ALPRAZOLAM [Concomitant]
  15. AMBIEN [Concomitant]

REACTIONS (2)
  - FEELING HOT [None]
  - PARAESTHESIA [None]
